FAERS Safety Report 18563429 (Version 1)
Quarter: 2020Q4

REPORT INFORMATION
  Report Type: Spontaneous
  Country: AU (occurrence: AU)
  Receive Date: 20201201
  Receipt Date: 20201201
  Transmission Date: 20210114
  Serious: Yes (Death, Hospitalization, Other)
  Sender: FDA-Public Use
  Company Number: AU-SA-2020SA343221

PATIENT

DRUGS (1)
  1. INSULIN GLARGINE [Suspect]
     Active Substance: INSULIN GLARGINE
     Indication: COMPLETED SUICIDE
     Dosage: NINE INSULIN GLARGINE PENS EQUIVALENT TO 2700 IU

REACTIONS (2)
  - Loss of consciousness [Fatal]
  - Overdose [Fatal]
